FAERS Safety Report 5396941-1 (Version None)
Quarter: 2007Q3

REPORT INFORMATION
  Report Type: 
  Country: None (occurrence: None)
  Receive Date: 20070725
  Receipt Date: 20070712
  Transmission Date: 20080115
  Serious: Yes (Hospitalization)
  Sender: FDA-Public Use
  Company Number: US-ELI_LILLY_AND_COMPANY-US200707003208

PATIENT
  Sex: Female

DRUGS (3)
  1. CYMBALTA [Suspect]
     Dosage: UNK MG, UNK
     Route: 048
  2. OPIOIDS [Concomitant]
  3. VICODIN [Concomitant]

REACTIONS (2)
  - HEPATIC ENZYME INCREASED [None]
  - MENTAL DISORDER [None]
